FAERS Safety Report 9486638 (Version 1)
Quarter: 2013Q3

REPORT INFORMATION
  Report Type: Spontaneous
  Country: DK (occurrence: FR)
  Receive Date: 20130829
  Receipt Date: 20130829
  Transmission Date: 20140515
  Serious: Yes (Hospitalization)
  Sender: FDA-Public Use
  Company Number: FR-FRI-1000048147

PATIENT
  Age: 59 Year
  Sex: Male

DRUGS (15)
  1. ESCITALOPRAM [Suspect]
     Indication: DEPRESSION
     Dosage: 2 DF
     Dates: start: 201211, end: 20130121
  2. COMBIVIR [Concomitant]
     Indication: HIV INFECTION
     Dosage: 150 MG / 300 MG
     Route: 048
  3. NORVIR [Concomitant]
     Indication: HIV INFECTION
     Dosage: 2 DF
     Route: 048
  4. PREZISTA [Concomitant]
     Indication: HIV INFECTION
     Dosage: 1200 MG
     Route: 048
  5. GUTRON [Concomitant]
     Dosage: 3 DF
  6. BACTRIM FORTE [Concomitant]
     Dosage: 1 DF
     Route: 048
  7. DEPAKOTE [Concomitant]
     Dosage: 2 DF
     Route: 048
  8. SERESTA [Concomitant]
     Dosage: 3 DF
     Route: 048
  9. MIRTAZAPINE [Concomitant]
     Dosage: 15 MG
     Route: 048
  10. ZOPLICONE [Concomitant]
     Route: 048
  11. THERALENE [Concomitant]
     Dosage: 20 GTT
     Route: 048
  12. GAVISCON [Concomitant]
     Dosage: 3 DF
     Route: 048
  13. SMECTA [Concomitant]
     Dosage: 1 DF
     Route: 048
  14. CLINUTREN [Concomitant]
  15. MOUTHWASH [Concomitant]
     Dosage: 3 DF

REACTIONS (1)
  - Hepatocellular injury [Recovered/Resolved]
